FAERS Safety Report 20218153 (Version 1)
Quarter: 2021Q4

REPORT INFORMATION
  Report Type: Spontaneous
  Country: US (occurrence: US)
  Receive Date: 20211222
  Receipt Date: 20211222
  Transmission Date: 20220303
  Serious: No
  Sender: FDA-Public Use
  Company Number: US-SANOFI-00899129

PATIENT
  Age: 66 Year
  Sex: Female

DRUGS (2)
  1. SOLIQUA 100/33 [Suspect]
     Active Substance: INSULIN GLARGINE\LIXISENATIDE
     Indication: Type 2 diabetes mellitus
     Dosage: 60 IU, QD
  2. SOLIQUA 100/33 [Suspect]
     Active Substance: INSULIN GLARGINE\LIXISENATIDE
     Dosage: 60 MG, Q12H

REACTIONS (2)
  - Blood glucose abnormal [Unknown]
  - Off label use [Unknown]
